FAERS Safety Report 5481363-5 (Version None)
Quarter: 2007Q4

REPORT INFORMATION
  Report Type: 
  Country: None (occurrence: None)
  Receive Date: 20071005
  Receipt Date: 20071005
  Transmission Date: 20080405
  Serious: No
  Sender: FDA-Public Use
  Company Number: None

PATIENT
  Sex: Male
  Weight: 83.9154 kg

DRUGS (1)
  1. ZICAM COLD REMEDY GEL SWABS  SINGLE SWABS  MATRIXX INITIATIVES INC. [Suspect]
     Indication: VIRAL UPPER RESPIRATORY TRACT INFECTION
     Dosage: ONE SWAB  EVERY 4 HOURS  NASAL
     Route: 045
     Dates: start: 20070707, end: 20070710

REACTIONS (2)
  - ANOSMIA [None]
  - SELF-MEDICATION [None]
